FAERS Safety Report 12451106 (Version 1)
Quarter: 2016Q2

REPORT INFORMATION
  Report Type: Spontaneous
  Country: US (occurrence: US)
  Receive Date: 20160609
  Receipt Date: 20160609
  Transmission Date: 20160815
  Serious: No
  Sender: FDA-Public Use
  Company Number: US-B. BRAUN MEDICAL INC.-1053588

PATIENT
  Age: 70 Year
  Sex: Female

DRUGS (8)
  1. INTRALIPID [Concomitant]
     Active Substance: EGG PHOSPHOLIPIDS\GLYCERIN\SOYBEAN OIL
     Route: 042
     Dates: end: 20160225
  2. INTRALIPID [Concomitant]
     Active Substance: EGG PHOSPHOLIPIDS\GLYCERIN\SOYBEAN OIL
     Route: 042
  3. GLUCOSE [Concomitant]
     Active Substance: DEXTROSE
     Route: 042
     Dates: start: 20150726
  4. GLUCOSE [Concomitant]
     Active Substance: DEXTROSE
     Route: 042
  5. NUTRILIPID I.V. FAT EMULSION [Suspect]
     Active Substance: SOYBEAN OIL
     Indication: PARENTERAL NUTRITION
     Route: 042
     Dates: start: 20160226, end: 20160331
  6. INTRALIPID [Concomitant]
     Active Substance: EGG PHOSPHOLIPIDS\GLYCERIN\SOYBEAN OIL
     Route: 042
     Dates: start: 20160401
  7. INTRALIPID [Concomitant]
     Active Substance: EGG PHOSPHOLIPIDS\GLYCERIN\SOYBEAN OIL
     Route: 042
     Dates: start: 20150726
  8. AMINO ACID NOS [Concomitant]
     Route: 042
     Dates: start: 20150726

REACTIONS (6)
  - Bilirubin conjugated increased [None]
  - Blood alkaline phosphatase increased [None]
  - Alanine aminotransferase increased [None]
  - Liver function test abnormal [None]
  - Aspartate aminotransferase increased [None]
  - Blood bilirubin increased [None]
